FAERS Safety Report 23575150 (Version 1)
Quarter: 2024Q1

REPORT INFORMATION
  Report Type: Spontaneous
  Country: US (occurrence: US)
  Receive Date: 20240228
  Receipt Date: 20240228
  Transmission Date: 20240410
  Serious: No
  Sender: FDA-Public Use
  Company Number: US-009507513-2402USA005313

PATIENT
  Age: 37 Year
  Sex: Female

DRUGS (1)
  1. TICE BCG [Suspect]
     Active Substance: BACILLUS CALMETTE-GUERIN SUBSTRAIN TICE LIVE ANTIGEN
     Dosage: UNK
     Dates: start: 202402, end: 202402

REACTIONS (4)
  - Product preparation issue [Unknown]
  - Occupational exposure to product [Unknown]
  - Accidental exposure to product [Unknown]
  - No adverse event [Unknown]

NARRATIVE: CASE EVENT DATE: 20240201
